FAERS Safety Report 8233584-6 (Version None)
Quarter: 2012Q1

REPORT INFORMATION
  Report Type: 
  Country: None (occurrence: None)
  Receive Date: 20120326
  Receipt Date: 20120316
  Transmission Date: 20120608
  Serious: Yes (Hospitalization, Other)
  Sender: FDA-Public Use
  Company Number: PHHY2011US11542

PATIENT
  Sex: Male
  Weight: 47.166 kg

DRUGS (4)
  1. EXJADE [Suspect]
     Indication: IRON METABOLISM DISORDER
     Dosage: 500 MG, DAILY
     Route: 048
     Dates: start: 20100824, end: 20110102
  2. HYDROXYUREA [Concomitant]
  3. EXJADE [Suspect]
     Dosage: 750 MG, DAILY
     Route: 048
     Dates: start: 20110103, end: 20110207
  4. EXJADE [Suspect]
     Dosage: 750 MG, DAILY
     Route: 048
     Dates: start: 20110131

REACTIONS (7)
  - WEIGHT DECREASED [None]
  - DIARRHOEA [None]
  - FRACTURE [None]
  - FALL [None]
  - PAIN [None]
  - MALAISE [None]
  - ASTHENIA [None]
